FAERS Safety Report 10976202 (Version 1)
Quarter: 2015Q1

REPORT INFORMATION
  Report Type: Spontaneous
  Country: US (occurrence: None)
  Receive Date: 20150226
  Receipt Date: 20150226
  Transmission Date: 20150721
  Serious: No
  Sender: FDA-Public Use
  Company Number: TPA2010A04072

PATIENT
  Age: 60 Year
  Sex: Male

DRUGS (2)
  1. UNKNOWN MULTIPLE MEDICATIONS (ALL OTHER THERAPEUTIC PRODUCTS) [Concomitant]
  2. ULORIC [Suspect]
     Active Substance: FEBUXOSTAT
     Route: 048

REACTIONS (2)
  - Blood creatinine increased [None]
  - Blood urea increased [None]
